FAERS Safety Report 5388746-2 (Version None)
Quarter: 2007Q3

REPORT INFORMATION
  Report Type: 
  Country: None (occurrence: None)
  Receive Date: 20070712
  Receipt Date: 20070629
  Transmission Date: 20080115
  Serious: Yes (Hospitalization, Congenital Anomaly)
  Sender: FDA-Public Use
  Company Number: FABR-11780

PATIENT
  Age: 12 Year
  Sex: Female

DRUGS (1)
  1. FABRAZYME [Suspect]
     Indication: DRUG EXPOSURE DURING PREGNANCY

REACTIONS (4)
  - ABSCESS [None]
  - BRANCHIAL CYST [None]
  - CELLULITIS [None]
  - DRUG EXPOSURE DURING PREGNANCY [None]
